FAERS Safety Report 23760890 (Version 1)
Quarter: 2024Q2

REPORT INFORMATION
  Report Type: Spontaneous
  Country: CN (occurrence: CN)
  Receive Date: 20240419
  Receipt Date: 20240419
  Transmission Date: 20240715
  Serious: Yes (Life-Threatening)
  Sender: FDA-Public Use
  Company Number: CN-Jiangsu Hengrui Medicine Co., Ltd.-2155768

PATIENT
  Age: 3 Year
  Sex: Female
  Weight: 37 kg

DRUGS (2)
  1. IRINOTECAN HYDROCHLORIDE [Suspect]
     Active Substance: IRINOTECAN HYDROCHLORIDE
     Indication: Ewing-like sarcoma
     Route: 041
     Dates: start: 20240316, end: 20240316
  2. IFOSFAMIDE [Concomitant]
     Active Substance: IFOSFAMIDE
     Route: 041
     Dates: start: 20240316, end: 20240316

REACTIONS (1)
  - Seizure [Recovering/Resolving]

NARRATIVE: CASE EVENT DATE: 20240316
